FAERS Safety Report 7665261-4 (Version None)
Quarter: 2011Q3

REPORT INFORMATION
  Report Type: 
  Country: None (occurrence: None)
  Receive Date: 20110806
  Receipt Date: 20110413
  Transmission Date: 20111222
  Serious: No
  Sender: FDA-Public Use
  Company Number: US-ABBOTT-11P-163-0718736-00

PATIENT
  Age: 36 Year
  Sex: Male
  Weight: 63.106 kg

DRUGS (4)
  1. OMEGA FISH OIL [Suspect]
     Indication: PRODUCT USED FOR UNKNOWN INDICATION
  2. ASPIRIN [Concomitant]
     Indication: PRODUCT USED FOR UNKNOWN INDICATION
  3. AMBIEN [Concomitant]
     Indication: PRODUCT USED FOR UNKNOWN INDICATION
  4. NIASPAN [Suspect]
     Indication: BLOOD TRIGLYCERIDES INCREASED
     Dates: start: 20110315

REACTIONS (4)
  - ERYTHEMA [None]
  - FEELING HOT [None]
  - CHILLS [None]
  - DIZZINESS [None]
